FAERS Safety Report 9192029 (Version 1)
Quarter: 2013Q1

REPORT INFORMATION
  Report Type: Spontaneous
  Country: US (occurrence: None)
  Receive Date: 20120703
  Receipt Date: 20120703
  Transmission Date: 20140127
  Serious: Yes (Other)
  Sender: FDA-Public Use
  Company Number: PHEH2012US009112

PATIENT
  Age: 56 Year
  Sex: Female

DRUGS (6)
  1. GILENYA (FTY)CAPSULE, 0.5 MG [Suspect]
     Indication: MULTIPLE SCLEROSIS
     Route: 048
     Dates: start: 20111130, end: 201203
  2. FAMIPRIDINE (FAMPRIDINE) [Concomitant]
  3. HYDROCHLORTHIAZIDE (HYDROCHLORTHIAZIDE) [Concomitant]
  4. LISINOPRIL (LISINOPRIL) [Concomitant]
  5. SYNTHROID (LEVOTHYROXINE SODIUM) [Concomitant]
  6. CYMBALTA (DULOXETINE HYDROCHLORIDE) [Concomitant]

REACTIONS (1)
  - Macular oedema [None]
